FAERS Safety Report 12042279 (Version 1)
Quarter: 2016Q1

REPORT INFORMATION
  Report Type: Spontaneous
  Country: US (occurrence: US)
  Receive Date: 20160208
  Receipt Date: 20160208
  Transmission Date: 20160526
  Serious: No
  Sender: FDA-Public Use
  Company Number: US-APOTEX-2015AP013723

PATIENT
  Age: 30 Year
  Sex: Female
  Weight: 95.24 kg

DRUGS (2)
  1. STRATTERA [Concomitant]
     Active Substance: ATOMOXETINE HYDROCHLORIDE
     Indication: PRODUCT USED FOR UNKNOWN INDICATION
     Dosage: UNK
     Route: 065
     Dates: start: 20150625
  2. PAXIL [Suspect]
     Active Substance: PAROXETINE HYDROCHLORIDE
     Indication: ANXIETY
     Dosage: UNK
     Dates: start: 20150625

REACTIONS (9)
  - Feeding disorder [Unknown]
  - Nausea [Unknown]
  - Dizziness [Unknown]
  - Vomiting [Unknown]
  - Dysarthria [Unknown]
  - Labelled drug-drug interaction medication error [Unknown]
  - Hypersomnia [Unknown]
  - Obsessive thoughts [Unknown]
  - Feeling drunk [Unknown]

NARRATIVE: CASE EVENT DATE: 20150625
